FAERS Safety Report 8790125 (Version 2)
Quarter: 2012Q4

REPORT INFORMATION
  Report Type: Report from Study
  Country: BE (occurrence: BE)
  Receive Date: 20120917
  Receipt Date: 20121024
  Transmission Date: 20130627
  Serious: Yes (Hospitalization, Other)
  Sender: FDA-Public Use
  Company Number: BE-ABBOTT-12P-013-0977576-00

PATIENT
  Sex: Male
  Weight: 113 kg

DRUGS (5)
  1. HUMIRA [Suspect]
     Indication: PSORIATIC ARTHROPATHY
     Dates: start: 20100206, end: 20120202
  2. FOLIC ACID [Concomitant]
     Indication: PRODUCT USED FOR UNKNOWN INDICATION
  3. METHOTREXAAT [Concomitant]
     Indication: PRODUCT USED FOR UNKNOWN INDICATION
  4. SYMBICORT [Concomitant]
     Indication: PRODUCT USED FOR UNKNOWN INDICATION
     Dosage: 2 x 2
  5. CHEMOTHERAPEUTICS [Concomitant]

REACTIONS (18)
  - Sleep study [Unknown]
  - Lung neoplasm malignant [Not Recovered/Not Resolved]
  - Snoring [Unknown]
  - Poor quality sleep [Unknown]
  - Nasal congestion [Unknown]
  - Cough [Unknown]
  - Dyspnoea [Unknown]
  - Sleep apnoea syndrome [Unknown]
  - Oxygen saturation decreased [Unknown]
  - Hypersomnia [Unknown]
  - Alopecia [Not Recovered/Not Resolved]
  - Fatigue [Unknown]
  - Leukopenia [Unknown]
  - Thrombocytopenia [Unknown]
  - Metastases to adrenals [Not Recovered/Not Resolved]
  - Metastases to adrenals [Unknown]
  - Chronic obstructive pulmonary disease [Unknown]
  - Infective exacerbation of chronic obstructive airways disease [Unknown]
